FAERS Safety Report 4274672-9 (Version None)
Quarter: 2004Q1

REPORT INFORMATION
  Report Type: 
  Country: None (occurrence: None)
  Receive Date: 20040115
  Receipt Date: 20040109
  Transmission Date: 20041129
  Serious: Yes (Life-Threatening)
  Sender: FDA-Public Use
  Company Number: 200410014BYL

PATIENT
  Age: 72 Year
  Sex: Male

DRUGS (2)
  1. ASPIRIN [Suspect]
     Dosage: 100 MG, QD, ORAL
     Route: 048
     Dates: start: 20030101
  2. NORVASC [Suspect]
     Dosage: ORAL
     Route: 048

REACTIONS (2)
  - APLASTIC ANAEMIA [None]
  - PURPURA [None]
